FAERS Safety Report 7002190-3 (Version None)
Quarter: 2010Q3

REPORT INFORMATION
  Report Type: 
  Country: None (occurrence: None)
  Receive Date: 20100920
  Receipt Date: 20100908
  Transmission Date: 20110219
  Serious: Yes (Death)
  Sender: FDA-Public Use
  Company Number: JP-PFIZER INC-2010105073

PATIENT
  Age: 83 Year
  Sex: Male

DRUGS (10)
  1. NOVASTAN [Suspect]
     Indication: THROMBOTIC CEREBRAL INFARCTION
     Dosage: 40 MG, DAILY
     Route: 041
     Dates: start: 20100808
  2. RADICUT [Suspect]
     Indication: THROMBOTIC CEREBRAL INFARCTION
     Dosage: 30 MG, 2X/DAY
     Route: 041
     Dates: start: 20100806
  3. ACTIVASE [Suspect]
     Indication: THROMBOTIC CEREBRAL INFARCTION
     Dosage: 40 ML, 1X/DAY
     Route: 042
     Dates: start: 20100806, end: 20100806
  4. PLETAL [Suspect]
     Indication: THROMBOTIC CEREBRAL INFARCTION
     Dosage: 100 MG, DAILY
     Route: 048
     Dates: start: 20100807, end: 20100807
  5. PLETAL [Suspect]
     Dosage: 200 MG, DAILY
     Route: 048
     Dates: start: 20100808
  6. ASPIRIN [Suspect]
     Indication: THROMBOTIC CEREBRAL INFARCTION
     Dosage: 100 MG, DAILY
     Route: 048
     Dates: start: 20100807
  7. PERINDOPRIL ERBUMINE [Concomitant]
     Indication: HYPERTENSION
     Dosage: 2 MG, UNK
     Route: 048
     Dates: start: 20100807
  8. AMLODIPINE BESYLATE [Concomitant]
     Indication: HYPERTENSION
     Dosage: 5 MG, UNK
     Route: 048
     Dates: start: 20100807
  9. LIPITOR [Concomitant]
     Indication: DYSLIPIDAEMIA
     Dosage: 10 MG, UNK
     Route: 048
     Dates: start: 20100807
  10. NITOROL R [Concomitant]
     Indication: ANGINA PECTORIS
     Dosage: 20 MG, UNK
     Route: 048
     Dates: start: 20100807

REACTIONS (1)
  - AORTIC ANEURYSM RUPTURE [None]
